FAERS Safety Report 8406824 (Version 2)
Quarter: 2012Q4

REPORT INFORMATION
  Report Type: 
  Country: US (occurrence: US)
  Receive Date: 20120215
  Receipt Date: 20121211
  Transmission Date: 20130627
  Serious: Yes (Other)
  Sender: FDA-Public Use
  Company Number: US-ROCHE-1039939

PATIENT
  Age: 29 Year
  Sex: Female
  Weight: 51.76 kg

DRUGS (2)
  1. ACCUTANE [Suspect]
     Indication: ACNE
     Dosage: 40-80 mg
     Route: 048
     Dates: start: 20030628, end: 20040102
  2. LOESTRIN [Concomitant]

REACTIONS (9)
  - Colitis ulcerative [Unknown]
  - Inflammatory bowel disease [Unknown]
  - Depression [Not Recovered/Not Resolved]
  - Injury [Unknown]
  - Intestinal haemorrhage [Unknown]
  - Irritable bowel syndrome [Unknown]
  - Dry skin [Unknown]
  - Headache [Unknown]
  - Lip dry [Unknown]
